FAERS Safety Report 17719196 (Version 1)
Quarter: 2020Q2

REPORT INFORMATION
  Report Type: Spontaneous
  Country: CA (occurrence: CA)
  Receive Date: 20200428
  Receipt Date: 20200428
  Transmission Date: 20200714
  Serious: Yes (Hospitalization)
  Sender: FDA-Public Use
  Company Number: NVSC2020CA112384

PATIENT
  Age: 31 Year
  Sex: Female

DRUGS (1)
  1. SANDOZ INDOMETHACIN [Suspect]
     Active Substance: INDOMETHACIN
     Indication: BACK PAIN
     Dosage: 100.0 MG
     Route: 054

REACTIONS (4)
  - Asthenia [Unknown]
  - Dizziness [Unknown]
  - Chorea [Unknown]
  - Hypotonia [Unknown]
